FAERS Safety Report 8490247-X (Version None)
Quarter: 2012Q3

REPORT INFORMATION
  Report Type: 
  Country: None (occurrence: None)
  Receive Date: 20120705
  Receipt Date: 20120123
  Transmission Date: 20120928
  Serious: No
  Sender: FDA-Public Use
  Company Number: US-BAUSCH-2012BL000670

PATIENT
  Sex: Male

DRUGS (1)
  1. OPCON-A [Suspect]
     Indication: PRODUCT USED FOR UNKNOWN INDICATION
     Route: 047
     Dates: start: 20120104, end: 20120117

REACTIONS (1)
  - OCULAR HYPERAEMIA [None]
